FAERS Safety Report 8382833-2 (Version None)
Quarter: 2012Q2

REPORT INFORMATION
  Report Type: 
  Country: None (occurrence: None)
  Receive Date: 20120522
  Receipt Date: 20120509
  Transmission Date: 20120825
  Serious: Yes (Other)
  Sender: FDA-Public Use
  Company Number: JP-2012-14697

PATIENT
  Age: 81 Year
  Sex: Female
  Weight: 43 kg

DRUGS (12)
  1. PLAVIX [Concomitant]
  2. SIGMART (NICORANDIL) [Concomitant]
  3. PANTOSIN (PANTETHINE) [Concomitant]
  4. LASIX [Suspect]
     Indication: CARDIAC FAILURE CHRONIC
     Dosage: 100 MG MILLIGRAM(S), QD, INTRAVENOUS
     Route: 042
     Dates: start: 20110823, end: 20110909
  5. KALIAID (CALCIUM POLYSYRENE SULFONATE) [Concomitant]
  6. LIPITOR [Concomitant]
  7. MUCOSOLVAN (AMBROXOL HYDROCHLORIDE) [Concomitant]
  8. SOLDACTONE (POTASSIUM CANRENOATE) [Concomitant]
  9. LANSOPRAZOLE [Concomitant]
  10. HUMULIN R [Concomitant]
  11. SAMSCA [Suspect]
     Indication: CARDIAC FAILURE CHRONIC
     Dosage: 15 MG MILLIGRAM(S), QAM, ORAL
     Route: 048
     Dates: start: 20110905, end: 20110910
  12. ASPIRIN [Concomitant]

REACTIONS (5)
  - DRUG INEFFECTIVE [None]
  - HYPERNATRAEMIA [None]
  - ALTERED STATE OF CONSCIOUSNESS [None]
  - COGNITIVE DISORDER [None]
  - TREATMENT NONCOMPLIANCE [None]
